FAERS Safety Report 14121128 (Version 2)
Quarter: 2020Q2

REPORT INFORMATION
  Report Type: Spontaneous
  Country: US (occurrence: US)
  Receive Date: 20171024
  Receipt Date: 20200519
  Transmission Date: 20200713
  Serious: No
  Sender: FDA-Public Use
  Company Number: US-SA-2017SA157923

PATIENT
  Age: 12 Year
  Sex: Male

DRUGS (2)
  1. LUMIZYME [Suspect]
     Active Substance: ALGLUCOSIDASE ALFA
     Dosage: 750 MG, QOW
     Route: 041
     Dates: start: 20200408
  2. LUMIZYME [Suspect]
     Active Substance: ALGLUCOSIDASE ALFA
     Indication: GLYCOGEN STORAGE DISEASE TYPE II
     Dosage: 800 MG, QOW
     Route: 041

REACTIONS (2)
  - Unevaluable event [Unknown]
  - Poor venous access [Unknown]

NARRATIVE: CASE EVENT DATE: 20170822
